FAERS Safety Report 4742284-6 (Version None)
Quarter: 2005Q3

REPORT INFORMATION
  Report Type: 
  Country: None (occurrence: None)
  Receive Date: 20050811
  Receipt Date: 20050401
  Transmission Date: 20060218
  Serious: No
  Sender: FDA-Public Use
  Company Number: US-GLAXOSMITHKLINE-A0552352A

PATIENT
  Sex: Female

DRUGS (3)
  1. PAXIL CR [Suspect]
     Dosage: 25MG PER DAY
     Route: 048
     Dates: end: 20050101
  2. PAXIL [Suspect]
     Dosage: 40MG PER DAY
     Route: 048
  3. KLONOPIN [Concomitant]

REACTIONS (12)
  - DIZZINESS [None]
  - DRUG INEFFECTIVE [None]
  - DRUG WITHDRAWAL SYNDROME [None]
  - ELECTRIC SHOCK [None]
  - FALL [None]
  - FATIGUE [None]
  - INSOMNIA [None]
  - MALAISE [None]
  - NAUSEA [None]
  - PHARMACEUTICAL PRODUCT COMPLAINT [None]
  - RIB FRACTURE [None]
  - WEIGHT DECREASED [None]
